FAERS Safety Report 6447536-X (Version None)
Quarter: 2009Q4

REPORT INFORMATION
  Report Type: 
  Country: None (occurrence: None)
  Receive Date: 20091119
  Receipt Date: 20090511
  Transmission Date: 20100525
  Serious: Yes (Other)
  Sender: FDA-Public Use
  Company Number: US-AMGEN-COG344312

PATIENT
  Sex: Male
  Weight: 150.3 kg

DRUGS (10)
  1. ENBREL [Suspect]
     Indication: RHEUMATOID ARTHRITIS
     Route: 058
     Dates: start: 20080627
  2. METHOTREXATE [Concomitant]
     Dates: start: 20070727
  3. FOLIC ACID [Concomitant]
     Dates: start: 20070727
  4. LOTREL (NOVARTIS PHARMACEUTICALS) [Concomitant]
  5. METFORMIN HCL [Concomitant]
  6. PAXIL [Concomitant]
  7. PREDNISONE [Concomitant]
     Dates: start: 20061205
  8. SPIRONOLACTONE [Concomitant]
  9. TRAMADOL [Concomitant]
     Dates: start: 20060101
  10. XANAX [Concomitant]

REACTIONS (2)
  - BASAL CELL CARCINOMA [None]
  - DYSPEPSIA [None]
